FAERS Safety Report 20006106 (Version 1)
Quarter: 2021Q4

REPORT INFORMATION
  Report Type: Report from Study
  Country: None (occurrence: KW)
  Receive Date: 20211027
  Receipt Date: 20211027
  Transmission Date: 20220303
  Serious: Yes (Other)
  Sender: FDA-Public Use
  Company Number: KW-ABBVIE-21K-091-4136638-00

PATIENT
  Age: 51 Year
  Sex: Male

DRUGS (1)
  1. RINVOQ [Suspect]
     Active Substance: UPADACITINIB
     Indication: Psoriatic arthropathy
     Route: 048
     Dates: start: 20210706, end: 20210810

REACTIONS (2)
  - Respiratory tract infection [Not Recovered/Not Resolved]
  - Respiratory tract inflammation [Unknown]

NARRATIVE: CASE EVENT DATE: 20210101
